FAERS Safety Report 16999622 (Version 1)
Quarter: 2019Q4

REPORT INFORMATION
  Report Type: Spontaneous
  Country: US (occurrence: US)
  Receive Date: 20191105
  Receipt Date: 20191105
  Transmission Date: 20200122
  Serious: Yes (Hospitalization)
  Sender: FDA-Public Use
  Company Number: None

PATIENT
  Age: 46 Year
  Sex: Female

DRUGS (8)
  1. ASPIRIN LOW TAB 81 MG EC [Concomitant]
  2. DOK CAP 100 MG [Concomitant]
  3. HYDROCO/APAP TAB 5-325 MG [Concomitant]
  4. ENBREL [Suspect]
     Active Substance: ETANERCEPT
     Indication: ARTHRITIS
     Dosage: ?          OTHER FREQUENCY:TWICE WEEKLY;?
     Route: 058
     Dates: start: 20180220
  5. PROGESTERONE CAP 200 MG [Concomitant]
  6. OXYCODONE TAB 5 MG [Concomitant]
  7. DICLOFENAC TAB 75 MG DR [Concomitant]
  8. NAPROXEN TAB 250 MG [Concomitant]

REACTIONS (2)
  - Surgery [None]
  - Therapy cessation [None]
